FAERS Safety Report 9531715 (Version 1)
Quarter: 2013Q3

REPORT INFORMATION
  Report Type: Spontaneous
  Country: US (occurrence: US)
  Receive Date: 20130918
  Receipt Date: 20130918
  Transmission Date: 20140515
  Serious: No
  Sender: FDA-Public Use
  Company Number: US-BAYER-2013-111093

PATIENT
  Age: 15 Year
  Sex: Female

DRUGS (1)
  1. SKYLA [Suspect]
     Indication: CONTRACEPTION
     Dosage: 14 MCG/24HR, CONT
     Route: 015
     Dates: start: 20130909, end: 20130909

REACTIONS (4)
  - Syncope [Recovered/Resolved]
  - Procedural pain [Recovered/Resolved]
  - Vomiting [Recovered/Resolved]
  - Complication of device insertion [Recovered/Resolved]
